FAERS Safety Report 22976699 (Version 5)
Quarter: 2023Q4

REPORT INFORMATION
  Report Type: Spontaneous
  Country: AT (occurrence: AT)
  Receive Date: 20230925
  Receipt Date: 20231218
  Transmission Date: 20240110
  Serious: Yes (Hospitalization, Other)
  Sender: FDA-Public Use
  Company Number: AT-BAXTER-2023BAX029993

PATIENT
  Age: 69 Year
  Sex: Male

DRUGS (46)
  1. BENDAMUSTINE HYDROCHLORIDE [Suspect]
     Active Substance: BENDAMUSTINE HYDROCHLORIDE
     Indication: Mantle cell lymphoma
     Dosage: 1 DOSAGE FORM (1 DOSAGE NUMBER)
     Route: 065
  2. BENDAMUSTINE HYDROCHLORIDE [Suspect]
     Active Substance: BENDAMUSTINE HYDROCHLORIDE
     Dosage: UNK
     Route: 065
  3. BENDAMUSTINE HYDROCHLORIDE [Suspect]
     Active Substance: BENDAMUSTINE HYDROCHLORIDE
     Dosage: REGIMEN 2
     Route: 065
  4. BENDAMUSTINE HYDROCHLORIDE [Suspect]
     Active Substance: BENDAMUSTINE HYDROCHLORIDE
     Dosage: REGIMEN 3
     Route: 065
  5. BORTEZOMIB [Suspect]
     Active Substance: BORTEZOMIB
     Indication: Mantle cell lymphoma
     Dosage: 1 DOSAGE FORM (1 DOSAGE NUMBER)
     Route: 065
  6. BORTEZOMIB [Suspect]
     Active Substance: BORTEZOMIB
     Dosage: REGIMEN 2
     Route: 065
  7. BORTEZOMIB [Suspect]
     Active Substance: BORTEZOMIB
     Dosage: UNK
     Route: 065
  8. DEXAMETHASONE [Suspect]
     Active Substance: DEXAMETHASONE
     Indication: Mantle cell lymphoma
     Dosage: UNK
     Route: 065
  9. CYCLOPHOSPHAMIDE [Suspect]
     Active Substance: CYCLOPHOSPHAMIDE
     Indication: Mantle cell lymphoma
     Dosage: 1 DOSAGE FORM (1 DOSAGE NUMBER)
     Route: 065
  10. CYCLOPHOSPHAMIDE [Suspect]
     Active Substance: CYCLOPHOSPHAMIDE
     Dosage: UNK, PFT-22120
     Route: 065
  11. CYCLOPHOSPHAMIDE [Suspect]
     Active Substance: CYCLOPHOSPHAMIDE
     Dosage: REGIMEN 4
     Route: 065
  12. CYCLOPHOSPHAMIDE [Suspect]
     Active Substance: CYCLOPHOSPHAMIDE
     Dosage: REGIMEN 2
     Route: 065
  13. CYCLOPHOSPHAMIDE [Suspect]
     Active Substance: CYCLOPHOSPHAMIDE
     Dosage: REGIMEN 3
     Route: 065
  14. CYCLOPHOSPHAMIDE [Suspect]
     Active Substance: CYCLOPHOSPHAMIDE
     Dosage: REGIMEN 5
     Route: 065
  15. DOXORUBICIN HYDROCHLORIDE [Suspect]
     Active Substance: DOXORUBICIN HYDROCHLORIDE
     Indication: Mantle cell lymphoma
     Dosage: 1 DOSAGE FORM (1 DOSAGE NUMBER
     Route: 065
  16. DOXORUBICIN HYDROCHLORIDE [Suspect]
     Active Substance: DOXORUBICIN HYDROCHLORIDE
     Dosage: UNK
     Route: 065
  17. DOXORUBICIN HYDROCHLORIDE [Suspect]
     Active Substance: DOXORUBICIN HYDROCHLORIDE
     Dosage: REGIMEN 2
     Route: 065
  18. VENETOCLAX [Suspect]
     Active Substance: VENETOCLAX
     Indication: Mantle cell lymphoma
     Dosage: 1 DOSAGE FORM (1 DOSAGE NUMBER)
     Route: 048
  19. VENETOCLAX [Suspect]
     Active Substance: VENETOCLAX
     Dosage: UNK
     Route: 065
  20. VENETOCLAX [Suspect]
     Active Substance: VENETOCLAX
     Dosage: REGIMEN 2
     Route: 065
  21. IMBRUVICA [Suspect]
     Active Substance: IBRUTINIB
     Indication: Mantle cell lymphoma
     Dosage: 1 DOSAGE FORM (1 DOSAGE NUMBER)
     Route: 065
  22. IMBRUVICA [Suspect]
     Active Substance: IBRUTINIB
     Dosage: REGIMEN 2
     Route: 048
  23. IMBRUVICA [Suspect]
     Active Substance: IBRUTINIB
     Dosage: UNK
     Route: 048
  24. PREDNISONE [Suspect]
     Active Substance: PREDNISONE
     Indication: Mantle cell lymphoma
     Dosage: 1 DOSAGE FORM (1 DOSAGE NUMBER)
     Route: 065
  25. PREDNISONE [Suspect]
     Active Substance: PREDNISONE
     Dosage: UNK
     Route: 065
  26. PREDNISONE [Suspect]
     Active Substance: PREDNISONE
     Dosage: REGIMEN 2
     Route: 065
  27. RUXIENCE [Suspect]
     Active Substance: RITUXIMAB-PVVR
     Indication: Mantle cell lymphoma
     Dosage: 1 DOSAGE FORM (1 DOSAGE NUMBER)
     Route: 065
  28. RUXIENCE [Suspect]
     Active Substance: RITUXIMAB-PVVR
     Dosage: REGIMEN 3
     Route: 065
  29. RUXIENCE [Suspect]
     Active Substance: RITUXIMAB-PVVR
     Dosage: REGIMEN 4
     Route: 065
  30. RUXIENCE [Suspect]
     Active Substance: RITUXIMAB-PVVR
     Dosage: REGIMEN 2
     Route: 065
  31. RUXIENCE [Suspect]
     Active Substance: RITUXIMAB-PVVR
     Dosage: UNK, PFT-22010
     Route: 065
  32. VINCRISTINE [Suspect]
     Active Substance: VINCRISTINE
     Indication: Mantle cell lymphoma
     Dosage: 1 DOSAGE FORM (1 DOSAGE NUMBER)
     Route: 065
  33. VINCRISTINE [Suspect]
     Active Substance: VINCRISTINE
     Dosage: UNK, PDF-11201000
     Route: 065
  34. VINCRISTINE [Suspect]
     Active Substance: VINCRISTINE
     Dosage: REGIMEN 2
     Route: 065
  35. CYTARABINE [Suspect]
     Active Substance: CYTARABINE
     Indication: Mantle cell lymphoma
     Dosage: 1 DOSAGE FORM (1 DOSAGE NUMBER)
     Route: 065
  36. CYTARABINE [Suspect]
     Active Substance: CYTARABINE
     Dosage: REGIMEN 3
     Route: 065
  37. CYTARABINE [Suspect]
     Active Substance: CYTARABINE
     Dosage: REGIMEN 2
     Route: 065
  38. CYTARABINE [Suspect]
     Active Substance: CYTARABINE
     Dosage: UNK, PFT-22120
     Route: 065
  39. IBRUTINIB [Suspect]
     Active Substance: IBRUTINIB
     Indication: Mantle cell lymphoma
     Dosage: 1 DOSAGE FORM (1 DOSAGE NUMBER)
     Route: 065
  40. GLOFITAMAB [Suspect]
     Active Substance: GLOFITAMAB
     Indication: Mantle cell lymphoma
     Dosage: 2.5 MILLIGRAM
     Route: 065
     Dates: start: 20230816
  41. GLOFITAMAB [Suspect]
     Active Substance: GLOFITAMAB
     Dosage: 10 MILLIGRAM
     Route: 065
  42. VENETOCLAX [Suspect]
     Active Substance: VENETOCLAX
     Indication: Mantle cell lymphoma
     Dosage: UNK
     Route: 065
  43. CYTARABINE [Suspect]
     Active Substance: CYTARABINE
     Indication: Mantle cell lymphoma
     Dosage: UNK
     Route: 065
  44. CYTARABINE [Suspect]
     Active Substance: CYTARABINE
     Indication: Mantle cell lymphoma
     Dosage: UNK
     Route: 065
  45. CYTARABINE [Suspect]
     Active Substance: CYTARABINE
     Dosage: UNK
     Route: 065
  46. VELCADE [Suspect]
     Active Substance: BORTEZOMIB
     Indication: Mantle cell lymphoma
     Dosage: UNK
     Route: 065

REACTIONS (4)
  - Cytokine release syndrome [Unknown]
  - Mantle cell lymphoma [Unknown]
  - Disease progression [Unknown]
  - Off label use [Unknown]

NARRATIVE: CASE EVENT DATE: 20230816
